FAERS Safety Report 4531126-X (Version None)
Quarter: 2004Q4

REPORT INFORMATION
  Report Type: 
  Country: None (occurrence: None)
  Receive Date: 20041130
  Receipt Date: 20040113
  Transmission Date: 20050328
  Serious: Yes (Other)
  Sender: FDA-Public Use
  Company Number: WAES 0401USA00978

PATIENT
  Age: 76 Year
  Sex: Male

DRUGS (1)
  1. FOSAMAX [Suspect]
     Dosage: 10 MG/DAILY/PO
     Route: 048
     Dates: start: 20031201, end: 20040113

REACTIONS (1)
  - RASH [None]
